FAERS Safety Report 5094387-7 (Version None)
Quarter: 2006Q3

REPORT INFORMATION
  Report Type: 
  Country: None (occurrence: None)
  Receive Date: 20060731
  Receipt Date: 20060421
  Transmission Date: 20061208
  Serious: No
  Sender: FDA-Public Use
  Company Number: 2006PV012553

PATIENT
  Age: 57 Year
  Sex: Female
  Weight: 95.2554 kg

DRUGS (1)
  1. BYETTA [Suspect]
     Indication: DIABETES MELLITUS NON-INSULIN-DEPENDENT
     Dosage: 5 MCG; BID; SC
     Route: 058
     Dates: start: 20060413

REACTIONS (7)
  - CONSTIPATION [None]
  - DISORIENTATION [None]
  - DIZZINESS [None]
  - FEELING JITTERY [None]
  - NAUSEA [None]
  - OEDEMA PERIPHERAL [None]
  - RETCHING [None]
